FAERS Safety Report 8231851-3 (Version None)
Quarter: 2012Q1

REPORT INFORMATION
  Report Type: 
  Country: None (occurrence: None)
  Receive Date: 20120323
  Receipt Date: 20120314
  Transmission Date: 20120608
  Serious: Yes (Hospitalization)
  Sender: FDA-Public Use
  Company Number: DE-JNJFOC-20120211778

PATIENT
  Age: 22 Year
  Sex: Male
  Weight: 61.2 kg

DRUGS (10)
  1. PREDNISONE TAB [Concomitant]
     Indication: CROHN'S DISEASE
  2. PLACEBO [Concomitant]
     Dates: start: 20090201, end: 20090401
  3. ADALIMUMAB [Concomitant]
     Dates: start: 20090201, end: 20090401
  4. REMICADE [Suspect]
     Route: 042
     Dates: start: 20070401
  5. PREDNISONE TAB [Concomitant]
  6. IRON [Concomitant]
     Indication: ANAEMIA
  7. REMICADE [Suspect]
     Route: 042
     Dates: start: 20070308
  8. REMICADE [Suspect]
     Indication: CROHN'S DISEASE
     Route: 042
     Dates: end: 20070701
  9. REMICADE [Suspect]
     Route: 042
     Dates: start: 20070611
  10. ALL OTHER THERAPEUTIC PRODUCTS [Concomitant]
     Indication: MALABSORPTION
     Dates: start: 20110301

REACTIONS (4)
  - ANAPHYLACTIC REACTION [None]
  - ILEECTOMY [None]
  - MALABSORPTION [None]
  - INFUSION RELATED REACTION [None]
